FAERS Safety Report 20354366 (Version 1)
Quarter: 2022Q1

REPORT INFORMATION
  Report Type: Other
  Country: CA (occurrence: CA)
  Receive Date: 20220120
  Receipt Date: 20220120
  Transmission Date: 20220423
  Serious: Yes (Hospitalization, Other)
  Sender: FDA-Public Use
  Company Number: CA-GLENMARK PHARMACEUTICALS-2022GMK069802

PATIENT

DRUGS (2)
  1. EZETIMIBE [Suspect]
     Active Substance: EZETIMIBE
     Indication: Blood cholesterol abnormal
     Dosage: UNK
     Route: 065
  2. LIPITOR [Suspect]
     Active Substance: ATORVASTATIN CALCIUM
     Indication: Product used for unknown indication
     Dosage: UNK
     Route: 065

REACTIONS (3)
  - Myocardial infarction [Unknown]
  - Product dose omission issue [Unknown]
  - Drug ineffective [Unknown]
